FAERS Safety Report 7130978-7 (Version None)
Quarter: 2010Q4

REPORT INFORMATION
  Report Type: 
  Country: None (occurrence: None)
  Receive Date: 20101201
  Receipt Date: 20101122
  Transmission Date: 20110411
  Serious: Yes (Life-Threatening, Hospitalization, Other)
  Sender: FDA-Public Use
  Company Number: A0885019A

PATIENT
  Age: 75 Year
  Sex: Female

DRUGS (8)
  1. ARIXTRA [Suspect]
     Indication: THROMBOSIS PROPHYLAXIS
     Dosage: 7.5MG PER DAY
     Route: 058
     Dates: start: 20100601, end: 20100717
  2. METOPROLOL [Concomitant]
  3. FUROSEMIDE [Concomitant]
  4. NORVASC [Concomitant]
  5. ZEMPLAR [Concomitant]
  6. COZAAR [Concomitant]
  7. LEVEMIR [Concomitant]
  8. GLIMEPIRIDE [Concomitant]

REACTIONS (5)
  - CONTUSION [None]
  - INJECTION SITE NODULE [None]
  - INJECTION SITE PAIN [None]
  - PAIN [None]
  - RECTAL HAEMORRHAGE [None]
